FAERS Safety Report 9053861 (Version 3)
Quarter: 2013Q1

REPORT INFORMATION
  Report Type: Spontaneous
  Country: US (occurrence: US)
  Receive Date: 20130207
  Receipt Date: 20130314
  Transmission Date: 20140127
  Serious: Yes (Death)
  Sender: FDA-Public Use
  Company Number: US-B.I. PHARMACEUTICALS,INC./RIDGEFIELD-2013-BI-03107BP

PATIENT
  Age: 86 Year
  Sex: Male

DRUGS (8)
  1. PRADAXA [Suspect]
     Indication: ATRIAL FIBRILLATION
     Dosage: 300 MG
     Route: 048
     Dates: end: 20130111
  2. NORVASC [Concomitant]
     Dosage: 5 MG
  3. VITAMIN E [Concomitant]
     Dosage: 200 U
  4. PEPCID [Concomitant]
     Dosage: 20 MG
  5. VITAMIN D [Concomitant]
     Dosage: 20 MG
  6. CARDURA [Concomitant]
     Dosage: 4 MG
  7. MAGNESIUM OXIDE [Concomitant]
     Dosage: 400 MG
  8. COUMADIN [Concomitant]
     Dosage: 5 MG

REACTIONS (2)
  - Death [Fatal]
  - Discomfort [Unknown]
